FAERS Safety Report 20141601 (Version 1)
Quarter: 2021Q4

REPORT INFORMATION
  Report Type: Spontaneous
  Country: US (occurrence: None)
  Receive Date: 20211202
  Receipt Date: 20211202
  Transmission Date: 20220303
  Serious: Yes (Other)
  Sender: FDA-Public Use
  Company Number: US-Hikma Pharmaceuticals USA Inc.-US-H14001-21-05123

PATIENT
  Age: 54 Year
  Sex: Female

DRUGS (2)
  1. EVEROLIMUS [Suspect]
     Active Substance: EVEROLIMUS
     Indication: Product used for unknown indication
     Dosage: UNKNOWN
     Route: 065
  2. PHOSPHATE SUPPLEMENTATION [Concomitant]
     Indication: Hypophosphataemia
     Dosage: UNKNOWN
     Route: 042

REACTIONS (3)
  - Glycosuria [Unknown]
  - Condition aggravated [Unknown]
  - Fanconi syndrome [Unknown]
